FAERS Safety Report 22628379 (Version 1)
Quarter: 2023Q2

REPORT INFORMATION
  Report Type: Report from Study
  Country: US (occurrence: US)
  Receive Date: 20230622
  Receipt Date: 20230622
  Transmission Date: 20230722
  Serious: Yes (Other)
  Sender: FDA-Public Use
  Company Number: US-GILEAD-2023-0633327

PATIENT
  Age: 71 Year
  Sex: Male

DRUGS (1)
  1. AZTREONAM LYSINE [Suspect]
     Active Substance: AZTREONAM LYSINE
     Indication: Cystic fibrosis
     Dosage: 75 MG, TID [75MG AMPULE 1 VIAL THREE TIMES DAILY VIA NEBULIZER FOR 2 MONTH CONTINUOUSLY]
     Route: 055
     Dates: start: 20230427

REACTIONS (2)
  - Pneumonia [Unknown]
  - Intentional dose omission [Unknown]
